FAERS Safety Report 24560633 (Version 2)
Quarter: 2025Q3

REPORT INFORMATION
  Report Type: Report from Study
  Country: CO (occurrence: CO)
  Receive Date: 20241029
  Receipt Date: 20250809
  Transmission Date: 20251021
  Serious: Yes (Hospitalization)
  Sender: ALEXION PHARMACEUTICALS
  Company Number: CO-AstraZeneca-CH-00731267A

PATIENT
  Age: 41 Year
  Sex: Female

DRUGS (1)
  1. BENRALIZUMAB [Suspect]
     Active Substance: BENRALIZUMAB
     Indication: Asthma
     Dosage: 30 MILLIGRAM, Q8W
     Dates: start: 20240826

REACTIONS (5)
  - Cheilitis [Unknown]
  - Dyspnoea [Unknown]
  - Vomiting [Unknown]
  - Inflammation [Unknown]
  - Glossitis [Unknown]

NARRATIVE: CASE EVENT DATE: 20240826
